FAERS Safety Report 9474014 (Version 1)
Quarter: 2013Q3

REPORT INFORMATION
  Report Type: Report from Study
  Country: US (occurrence: US)
  Receive Date: 20130823
  Receipt Date: 20130823
  Transmission Date: 20140515
  Serious: Yes (Other)
  Sender: FDA-Public Use
  Company Number: US-ABBOTT-13P-163-1134593-00

PATIENT
  Age: 43 Year
  Sex: Female
  Weight: 81.72 kg

DRUGS (4)
  1. HUMIRA [Suspect]
     Indication: RHEUMATOID ARTHRITIS
     Dosage: ON HOLD
     Dates: start: 201207, end: 201307
  2. CORTISONE [Suspect]
     Indication: RHEUMATOID ARTHRITIS
     Dates: end: 201307
  3. PERCOCET [Concomitant]
     Indication: ARTHRALGIA
  4. PERCOCET [Concomitant]
     Indication: PROCEDURAL PAIN

REACTIONS (4)
  - Arthropathy [Unknown]
  - Drug effect decreased [Unknown]
  - Rheumatoid arthritis [Unknown]
  - Benign bone neoplasm [Unknown]
